FAERS Safety Report 5248074-2 (Version None)
Quarter: 2007Q1

REPORT INFORMATION
  Report Type: 
  Country: None (occurrence: None)
  Receive Date: 20070222
  Receipt Date: 20070214
  Transmission Date: 20070707
  Serious: Yes (Hospitalization, Other)
  Sender: FDA-Public Use
  Company Number: TAP2007Q00225

PATIENT
  Age: 79 Year
  Sex: Male

DRUGS (2)
  1. LUPRON DEPOT-4 [Suspect]
     Indication: PROSTATE CANCER
     Dosage: 30 MG, 1 IN 4 M, INTRAMUSCULAR
     Route: 030
     Dates: start: 20060426
  2. VITAMIN B12 [Concomitant]

REACTIONS (7)
  - ASTHENIA [None]
  - FATIGUE [None]
  - NEOPLASM MALIGNANT [None]
  - NERVE COMPRESSION [None]
  - PLATELET COUNT DECREASED [None]
  - PNEUMONIA [None]
  - RENAL CELL CARCINOMA STAGE UNSPECIFIED [None]
